FAERS Safety Report 24904195 (Version 1)
Quarter: 2025Q1

REPORT INFORMATION
  Report Type: Spontaneous
  Country: US (occurrence: None)
  Receive Date: 20250129
  Receipt Date: 20250129
  Transmission Date: 20250409
  Serious: Yes (Hospitalization)
  Sender: FDA-CTU
  Company Number: None

PATIENT
  Age: 58 Year
  Sex: Female
  Weight: 93.44 kg

DRUGS (4)
  1. WINREVAIR [Suspect]
     Active Substance: SOTATERCEPT-CSRK
     Dates: start: 202410
  2. AMBRISENTAN [Concomitant]
     Active Substance: AMBRISENTAN
  3. WINREVAIR [Concomitant]
     Active Substance: SOTATERCEPT-CSRK
  4. UPTRAVI [Concomitant]
     Active Substance: SELEXIPAG

REACTIONS (6)
  - Pneumonia [None]
  - Infection [None]
  - Pulmonary arterial hypertension [None]
  - Condition aggravated [None]
  - Gait disturbance [None]
  - Oxygen saturation decreased [None]

NARRATIVE: CASE EVENT DATE: 20241101
